FAERS Safety Report 23083194 (Version 2)
Quarter: 2023Q4

REPORT INFORMATION
  Report Type: Report from Study
  Country: US (occurrence: US)
  Receive Date: 20231019
  Receipt Date: 20231211
  Transmission Date: 20240110
  Serious: No
  Sender: FDA-Public Use
  Company Number: US-002147023-NVSC2023US224650

PATIENT
  Sex: Female

DRUGS (1)
  1. ENTRESTO [Suspect]
     Active Substance: SACUBITRIL\VALSARTAN
     Indication: Product used for unknown indication
     Dosage: UNK, BID (1/2 TABLET)
     Route: 065
     Dates: start: 20230728

REACTIONS (8)
  - Product dose omission in error [Unknown]
  - Fatigue [Unknown]
  - Wrong technique in product usage process [Unknown]
  - Somnolence [Unknown]
  - Gastroenteritis viral [Unknown]
  - Palpitations [Unknown]
  - Vomiting [Unknown]
  - Cough [Unknown]
